FAERS Safety Report 7457431-5 (Version None)
Quarter: 2011Q2

REPORT INFORMATION
  Report Type: 
  Country: None (occurrence: None)
  Receive Date: 20110504
  Receipt Date: 20110428
  Transmission Date: 20111010
  Serious: Yes (Death, Other)
  Sender: FDA-Public Use
  Company Number: PHHY2011MX36941

PATIENT
  Age: 76 Year
  Sex: Female

DRUGS (1)
  1. ZOLEDRONIC ACID [Suspect]
     Indication: OSTEOPOROSIS
     Dosage: 5 MG/ 100ML, YEARLY
     Route: 042
     Dates: start: 20100801

REACTIONS (4)
  - HYPOVOLAEMIA [None]
  - DEATH [None]
  - FEMUR FRACTURE [None]
  - LOWER LIMB FRACTURE [None]
